FAERS Safety Report 8388038-3 (Version None)
Quarter: 2012Q2

REPORT INFORMATION
  Report Type: 
  Country: None (occurrence: None)
  Receive Date: 20120525
  Receipt Date: 20120516
  Transmission Date: 20120825
  Serious: Yes (Other)
  Sender: FDA-Public Use
  Company Number: CA-ELI_LILLY_AND_COMPANY-CA201204003512

PATIENT
  Age: 66 Year
  Sex: Female
  Weight: 76 kg

DRUGS (8)
  1. HYZAAR [Concomitant]
     Dosage: 50/12.5 MG
  2. MOMETASONE FUROATE [Concomitant]
  3. PAROXETINE [Concomitant]
     Dosage: 15 MG, QD
  4. LORAZEPAM [Concomitant]
     Dosage: 0.5 MG, QD
  5. GEMZAR [Suspect]
     Indication: OVARIAN CANCER
     Dosage: 1000 MG/M2, UNK
     Route: 048
     Dates: start: 20000801, end: 20110105
  6. CALCIUM [Concomitant]
     Dosage: 500 MG, UNK
  7. VITAMIN D [Concomitant]
  8. PROCHLORPERAZINE [Concomitant]

REACTIONS (9)
  - THROMBOCYTOSIS [None]
  - URTICARIA [None]
  - RENAL FAILURE ACUTE [None]
  - THROMBOTIC MICROANGIOPATHY [None]
  - INCORRECT ROUTE OF DRUG ADMINISTRATION [None]
  - HYPERTENSION [None]
  - ANAEMIA [None]
  - BLOOD CREATININE INCREASED [None]
  - THROMBOCYTOPENIA [None]
